FAERS Safety Report 7685062-0 (Version None)
Quarter: 2011Q3

REPORT INFORMATION
  Report Type: 
  Country: None (occurrence: None)
  Receive Date: 20110811
  Receipt Date: 20110524
  Transmission Date: 20111222
  Serious: No
  Sender: FDA-Public Use
  Company Number: 16569

PATIENT
  Sex: Male
  Weight: 73.9363 kg

DRUGS (4)
  1. XOPENEX [Concomitant]
  2. SYMBICORT [Concomitant]
  3. COMBIVENT [Concomitant]
  4. GLASSIA [Suspect]
     Indication: ALPHA-1 ANTI-TRYPSIN DECREASED
     Dosage: 330MG X 1 HR IV INFUSION
     Dates: start: 20110509

REACTIONS (6)
  - EYE PRURITUS [None]
  - CHEST DISCOMFORT [None]
  - PRURITUS GENERALISED [None]
  - ERYTHEMA [None]
  - URTICARIA [None]
  - INFUSION RELATED REACTION [None]
